FAERS Safety Report 13325017 (Version 2)
Quarter: 2017Q2

REPORT INFORMATION
  Report Type: Report from Study
  Country: US (occurrence: MX)
  Receive Date: 20170310
  Receipt Date: 20170407
  Transmission Date: 20170830
  Serious: Yes (Other)
  Sender: FDA-Public Use
  Company Number: US-SUNOVION-2017SUN001052

PATIENT
  Age: 65 Year
  Sex: Female

DRUGS (4)
  1. INDACATEROL AND GLYCOPYRROLATE [Suspect]
     Active Substance: GLYCOPYRROLATE\INDACATEROL MALEATE
     Indication: ASTHMA
     Dosage: 1 DF (GLYCOPYRRONIUM BROMIDE 50 UG, INDACATEROL 100 UG) , BID (1 IN THE MORNING AND 1 AT NIGHT)
     Route: 055
     Dates: start: 201610
  2. MIFLONIDE [Suspect]
     Active Substance: BUDESONIDE
     Indication: ASTHMA
     Dosage: 1 DF, BID (1 IN MORNING AND 1 AT NIGHT)
     Route: 055
     Dates: start: 201610
  3. MONTELUKAST [Concomitant]
     Active Substance: MONTELUKAST SODIUM
     Dosage: UNK
  4. AMINOPHYLINE [Concomitant]
     Active Substance: AMINOPHYLLINE
     Dosage: UNK

REACTIONS (6)
  - Syncope [Not Recovered/Not Resolved]
  - Feeling abnormal [Unknown]
  - Product use issue [Not Recovered/Not Resolved]
  - Stress [Not Recovered/Not Resolved]
  - Inappropriate schedule of drug administration [Not Recovered/Not Resolved]
  - Asthma [Unknown]

NARRATIVE: CASE EVENT DATE: 201610
